FAERS Safety Report 8661318 (Version 2)
Quarter: 2013Q1

REPORT INFORMATION
  Report Type: Report from Study
  Country: CA (occurrence: CA)
  Receive Date: 20120712
  Receipt Date: 20130109
  Transmission Date: 20140127
  Serious: Yes (Death)
  Sender: FDA-Public Use
  Company Number: PHHY2012CA059272

PATIENT
  Age: 85 Year
  Sex: Female

DRUGS (5)
  1. ACLASTA/ZOLEDRONATE [Suspect]
     Indication: OSTEOPOROSIS
     Dosage: UNK UKN, UNK
     Route: 042
     Dates: start: 20090910
  2. ACLASTA/ZOLEDRONATE [Suspect]
     Dosage: UNK UKN, UNK
     Route: 042
     Dates: start: 20100923
  3. ACLASTA/ZOLEDRONATE [Suspect]
     Dosage: UNK UKN, UNK
     Route: 042
     Dates: start: 20110929
  4. VITAMIN D [Concomitant]
     Dosage: 800 IU, UNK
     Dates: start: 19990824
  5. CALCIUM [Concomitant]
     Dosage: 1000 MG, UNK
     Dates: start: 19990824

REACTIONS (1)
  - Cerebrovascular accident [Fatal]
